FAERS Safety Report 7002214-3 (Version None)
Quarter: 2010Q3

REPORT INFORMATION
  Report Type: 
  Country: None (occurrence: None)
  Receive Date: 20100920
  Receipt Date: 20100614
  Transmission Date: 20110219
  Serious: No
  Sender: FDA-Public Use
  Company Number: US-ASTRAZENECA-2009UW14444

PATIENT
  Age: 42 Year
  Sex: Female
  Weight: 91.2 kg

DRUGS (21)
  1. SEROQUEL [Suspect]
     Indication: BIPOLAR DISORDER
     Route: 048
     Dates: start: 20030101, end: 20070101
  2. SEROQUEL [Suspect]
     Indication: SLEEP DISORDER
     Route: 048
     Dates: start: 20030101, end: 20070101
  3. SEROQUEL [Suspect]
     Indication: MENTAL DISORDER
     Route: 048
     Dates: start: 20030101, end: 20070101
  4. SEROQUEL [Suspect]
     Indication: INSOMNIA
     Route: 048
     Dates: start: 20030101, end: 20070101
  5. SEROQUEL [Suspect]
     Route: 048
  6. SEROQUEL [Suspect]
     Route: 048
  7. SEROQUEL [Suspect]
     Route: 048
  8. SEROQUEL [Suspect]
     Route: 048
  9. PROZAC [Concomitant]
     Dates: start: 20060101
  10. PROZAC [Concomitant]
     Dates: start: 20090101
  11. WEED [Concomitant]
     Indication: PAIN
     Dates: start: 20060101
  12. WARFARIN SODIUM [Concomitant]
     Dates: start: 20090101
  13. METOPROLOL TARTRATE [Concomitant]
     Dates: start: 20090101
  14. OMEPRAZOLE [Concomitant]
     Dates: start: 20090101
  15. NABUMETONE [Concomitant]
     Dosage: 750 MG TWICE DAILY PRN
     Dates: start: 20090101
  16. WELLBUTRIN XL [Concomitant]
     Dates: start: 20090101
  17. ALBUTEROL [Concomitant]
     Dosage: HFA PRN
     Dates: start: 20090101
  18. METHIMAZOLE [Concomitant]
     Dates: start: 20090101
  19. METFORMIN [Concomitant]
     Dates: start: 20090101
  20. XANAX [Concomitant]
     Dosage: 0.5 MG TWICE DAILY PRN
     Dates: start: 20090101
  21. TRAMADOL [Concomitant]
     Dosage: 50 MG ONE TO TWO TABLETS Q.6.H. PRN
     Dates: start: 20090101

REACTIONS (2)
  - KIDNEY INFECTION [None]
  - TYPE 2 DIABETES MELLITUS [None]
